FAERS Safety Report 6133471-3 (Version None)
Quarter: 2009Q1

REPORT INFORMATION
  Report Type: 
  Country: None (occurrence: None)
  Receive Date: 20090324
  Receipt Date: 20090324
  Transmission Date: 20090719
  Serious: Yes (Other)
  Sender: FDA-Public Use
  Company Number: None

PATIENT
  Age: 59 Year
  Sex: Male
  Weight: 99.7913 kg

DRUGS (2)
  1. HEPARIN [Suspect]
     Indication: DEEP VEIN THROMBOSIS
     Dosage: CONSTAND IV DRIP
     Route: 041
     Dates: start: 20090106, end: 20090112
  2. HEPARIN [Suspect]
     Indication: DEEP VEIN THROMBOSIS
     Dosage: CONSTAND IV DRIP
     Route: 041
     Dates: start: 20090112, end: 20090112

REACTIONS (3)
  - ASTHENIA [None]
  - FATIGUE [None]
  - INSOMNIA [None]
